FAERS Safety Report 25706208 (Version 1)
Quarter: 2025Q3

REPORT INFORMATION
  Report Type: Spontaneous
  Country: US (occurrence: US)
  Receive Date: 20250820
  Receipt Date: 20250820
  Transmission Date: 20251021
  Serious: No
  Sender: SPRINGWORKS THERAPEUTIC
  Company Number: US-SPRINGWORKS THERAPEUTICS-SW-003175

PATIENT
  Age: 1 Year

DRUGS (1)
  1. GOMEKLI [Suspect]
     Active Substance: MIRDAMETINIB
     Indication: Dysplasia
     Dosage: 1 MILLIGRAM, BID, 21 DAYS ON AND 7 DAYS OFF

REACTIONS (2)
  - Diarrhoea [Recovered/Resolved]
  - Therapeutic product effective for unapproved indication [Unknown]
